FAERS Safety Report 21771954 (Version 1)
Quarter: 2022Q4

REPORT INFORMATION
  Report Type: Spontaneous
  Country: US (occurrence: US)
  Receive Date: 20221223
  Receipt Date: 20221223
  Transmission Date: 20230112
  Serious: No
  Sender: FDA-Public Use
  Company Number: US-VIIV HEALTHCARE LIMITED-US2022AMR188589

PATIENT
  Sex: Male

DRUGS (4)
  1. CABOTEGRAVIR [Suspect]
     Active Substance: CABOTEGRAVIR
     Indication: Prophylaxis against HIV infection
     Dosage: UNK 600MG (3ML)
     Dates: start: 20220919
  2. CABOTEGRAVIR [Suspect]
     Active Substance: CABOTEGRAVIR
     Dosage: UNK 600MG (3ML)
     Dates: start: 20221024
  3. CABOTEGRAVIR [Suspect]
     Active Substance: CABOTEGRAVIR
  4. MONKEYPOX VACCINE NOS [Suspect]
     Active Substance: MONKEYPOX VACCINE NOS
     Indication: Product used for unknown indication
     Dosage: UNK

REACTIONS (4)
  - Pyrexia [Unknown]
  - Injection site pain [Recovered/Resolved]
  - Gait disturbance [Recovered/Resolved]
  - Loss of personal independence in daily activities [Unknown]

NARRATIVE: CASE EVENT DATE: 20220101
